FAERS Safety Report 8843723 (Version 1)
Quarter: 2012Q4

REPORT INFORMATION
  Report Type: 
  Country: GB (occurrence: GB)
  Receive Date: 20121016
  Receipt Date: 20121016
  Transmission Date: 20130627
  Serious: Yes (Other)
  Sender: FDA-Public Use
  Company Number: GB-TEVA-364361ISR

PATIENT
  Sex: Male

DRUGS (11)
  1. AMITRIPTYLINE [Suspect]
     Indication: PRODUCT USED FOR UNKNOWN INDICATION
     Dosage: 50 Milligram Daily; 50MG At night
     Route: 065
  2. TROBALT [Interacting]
     Indication: PARTIAL SEIZURES
     Dosage: 50 Milligram Daily; 50MG At night
     Route: 048
     Dates: start: 20120629, end: 20120703
  3. LORATADINE [Concomitant]
     Dosage: 10MG per day
  4. OXYCONTIN [Concomitant]
     Dosage: 30MG Twice per day
  5. OXYNORM [Concomitant]
     Dosage: 5MG Three times per day
  6. LACOSAMIDE [Concomitant]
     Dosage: 200MG Twice per day
  7. NAPROXEN [Concomitant]
     Dosage: 500MG Twice per day
  8. LAMICTAL [Concomitant]
     Dosage: 300MG Twice per day
  9. MEBEVERINE [Concomitant]
     Dosage: 135MG Three times per day
  10. LAXIDO [Concomitant]
     Dosage: 3SAC per day
  11. BECONASE [Concomitant]
     Route: 045

REACTIONS (6)
  - Urinary retention [Recovered/Resolved]
  - Urinary tract infection bacterial [Recovered/Resolved]
  - Haematuria [Recovered/Resolved]
  - Urethral discharge [Recovered/Resolved]
  - Product quality issue [Unknown]
  - Drug interaction [Unknown]
